FAERS Safety Report 6088149-1 (Version None)
Quarter: 2009Q1

REPORT INFORMATION
  Report Type: 
  Country: None (occurrence: None)
  Receive Date: 20090224
  Receipt Date: 20090212
  Transmission Date: 20090719
  Serious: Yes (Other)
  Sender: FDA-Public Use
  Company Number: PHEH2009US00743

PATIENT
  Sex: Male

DRUGS (1)
  1. ZADITOR [Suspect]
     Dosage: UNK, UNK

REACTIONS (4)
  - EYE DISCHARGE [None]
  - EYE DISORDER [None]
  - EYE PRURITUS [None]
  - THERAPY RESPONDER [None]
